FAERS Safety Report 9125494 (Version 2)
Quarter: 2013Q2

REPORT INFORMATION
  Report Type: Spontaneous
  Country: US (occurrence: US)
  Receive Date: 20130117
  Receipt Date: 20130423
  Transmission Date: 20140414
  Serious: Yes (Other)
  Sender: FDA-Public Use
  Company Number: US-BRISTOL-MYERS SQUIBB COMPANY-17213398

PATIENT
  Age: 70 Year
  Sex: Male
  Weight: 93.42 kg

DRUGS (9)
  1. YERVOY [Suspect]
     Indication: MALIGNANT MELANOMA
     Dosage: 2:18DEC12
     Route: 042
     Dates: start: 20121128
  2. ECOTRIN [Concomitant]
  3. FUROSEMIDE [Concomitant]
  4. TOPROL [Concomitant]
  5. LIPITOR [Concomitant]
  6. XANAX [Concomitant]
  7. MIRALAX [Concomitant]
     Indication: CONSTIPATION
     Dosage: QOD
  8. MINERAL OIL [Concomitant]
     Indication: CONSTIPATION
     Dosage: QOD
  9. KLOR-CON [Concomitant]

REACTIONS (6)
  - Muscular weakness [Unknown]
  - Oral mucosal blistering [Recovered/Resolved]
  - Blood potassium increased [Unknown]
  - Diarrhoea [Unknown]
  - Dehydration [Unknown]
  - Weight decreased [Unknown]
